FAERS Safety Report 7760450-2 (Version None)
Quarter: 2011Q3

REPORT INFORMATION
  Report Type: 
  Country: None (occurrence: None)
  Receive Date: 20110919
  Receipt Date: 20110810
  Transmission Date: 20111222
  Serious: Yes (Other)
  Sender: FDA-Public Use
  Company Number: US-BAYER-201040339NA

PATIENT
  Age: 27 Year
  Sex: Female
  Weight: 83.9 kg

DRUGS (10)
  1. YAZ [Suspect]
  2. ABILIFY [Concomitant]
     Dosage: 5 MG, UNK
     Route: 048
     Dates: start: 20090223
  3. YAZ [Suspect]
     Indication: PREMENSTRUAL SYNDROME
     Dosage: UNK UNK, QD
     Route: 048
     Dates: start: 20081001, end: 20090401
  4. TOPAMAX [Concomitant]
     Dosage: 100 MG, UNK
     Route: 048
     Dates: start: 20090213
  5. PROAIR HFA [Concomitant]
     Dosage: UNK
     Route: 048
     Dates: start: 20090223
  6. ALBUTEROL [Concomitant]
  7. VITAMIN TAB [Concomitant]
  8. VISCERAL [Concomitant]
  9. PROTONIX [Concomitant]
  10. ALDARA [Concomitant]
     Dosage: UNK
     Dates: start: 20090417

REACTIONS (7)
  - ANXIETY DISORDER [None]
  - MENTAL DISORDER [None]
  - BILIARY COLIC [None]
  - INFLAMMATORY BOWEL DISEASE [None]
  - CHOLECYSTITIS CHRONIC [None]
  - CHOLELITHIASIS [None]
  - AFFECTIVE DISORDER [None]
